FAERS Safety Report 8799978 (Version 2)
Quarter: 2012Q4

REPORT INFORMATION
  Report Type: 
  Country: GB (occurrence: GB)
  Receive Date: 20120921
  Receipt Date: 20121015
  Transmission Date: 20130627
  Serious: Yes (Other)
  Sender: FDA-Public Use
  Company Number: GB-RANBAXY-2012R1-59993

PATIENT
  Age: 52 Year
  Sex: Male

DRUGS (6)
  1. RAMIPRIL [Suspect]
     Indication: HYPERTENSION
     Dosage: 10 mg, qd
     Route: 048
     Dates: start: 20120809, end: 20120813
  2. RAMIPRIL [Suspect]
     Dosage: UNK
     Route: 065
     Dates: start: 201105
  3. BECONASE [Concomitant]
     Indication: SEASONAL ALLERGY
     Dosage: 1 puff, bid
     Route: 045
  4. EZETIMIBE [Concomitant]
     Indication: BLOOD CHOLESTEROL INCREASED
     Dosage: 10 mg, qd
     Route: 065
  5. FLIXOTIDE [Concomitant]
     Indication: ASTHMA
     Dosage: UNK
     Route: 065
  6. GLICLAZIDE [Concomitant]
     Indication: DIABETES MELLITUS
     Dosage: 80 mg, half a tablet BD - breakfast + main meal
     Route: 065

REACTIONS (3)
  - Drug ineffective [Recovered/Resolved]
  - Product taste abnormal [Unknown]
  - Dysgeusia [Recovered/Resolved]
